FAERS Safety Report 6292687-6 (Version None)
Quarter: 2009Q3

REPORT INFORMATION
  Report Type: 
  Country: None (occurrence: None)
  Receive Date: 20090731
  Receipt Date: 20090630
  Transmission Date: 20100115
  Serious: No
  Sender: FDA-Public Use
  Company Number: US-BAYER-200912011BCC

PATIENT
  Age: 58 Year
  Sex: Male
  Weight: 89 kg

DRUGS (6)
  1. ALEVE [Suspect]
     Indication: BURSITIS
     Dosage: UNIT DOSE: 220 MG
     Route: 048
     Dates: start: 19920101, end: 20090501
  2. ALEVE [Suspect]
     Indication: BURSITIS
     Dosage: UNIT DOSE: 220 MG
     Route: 048
     Dates: start: 20090501, end: 20090601
  3. ATENOLOL [Concomitant]
     Route: 065
  4. PLAVIX [Concomitant]
     Route: 065
  5. SIMVASTATIN [Concomitant]
     Route: 065
  6. ASPIRIN [Concomitant]
     Route: 065

REACTIONS (2)
  - ABDOMINAL PAIN UPPER [None]
  - COLD SWEAT [None]
